FAERS Safety Report 14813637 (Version 1)
Quarter: 2018Q2

REPORT INFORMATION
  Report Type: Spontaneous
  Country: FR (occurrence: FR)
  Receive Date: 20180426
  Receipt Date: 20180426
  Transmission Date: 20180711
  Serious: Yes (Other)
  Sender: FDA-Public Use
  Company Number: FR-MERCK KGAA-2046565

PATIENT
  Age: 65 Year
  Sex: Female

DRUGS (1)
  1. NOVOTHYROX [Suspect]
     Active Substance: LEVOTHYROXINE SODIUM
     Indication: PRODUCT USED FOR UNKNOWN INDICATION
     Dates: end: 2017

REACTIONS (9)
  - Vomiting [None]
  - Loss of consciousness [None]
  - Injury [Recovering/Resolving]
  - Feeling abnormal [None]
  - Malaise [None]
  - Nausea [None]
  - Syncope [None]
  - Hypothyroidism [Recovering/Resolving]
  - Neutrophil count decreased [None]

NARRATIVE: CASE EVENT DATE: 20171017
